FAERS Safety Report 23503179 (Version 1)
Quarter: 2024Q1

REPORT INFORMATION
  Report Type: Spontaneous
  Country: CN (occurrence: CN)
  Receive Date: 20240208
  Receipt Date: 20240208
  Transmission Date: 20240410
  Serious: Yes (Hospitalization)
  Sender: FDA-Public Use
  Company Number: CN-009507513-2402CHN002064

PATIENT
  Age: 50 Year
  Sex: Female
  Weight: 50 kg

DRUGS (15)
  1. KEYTRUDA [Suspect]
     Active Substance: PEMBROLIZUMAB
     Indication: Invasive ductal breast carcinoma
     Dosage: 200 MILLIGRAM, ONCE; IVGTT, D6
     Route: 041
     Dates: start: 20240124, end: 20240124
  2. KEYTRUDA [Suspect]
     Active Substance: PEMBROLIZUMAB
     Indication: Metastases to liver
  3. KEYTRUDA [Suspect]
     Active Substance: PEMBROLIZUMAB
     Indication: Metastases to bone
  4. KEYTRUDA [Suspect]
     Active Substance: PEMBROLIZUMAB
     Indication: Metastases to central nervous system
  5. FLUOROURACIL [Suspect]
     Active Substance: FLUOROURACIL
     Indication: Invasive ductal breast carcinoma
     Dosage: 0.23 GRAM, QD; CIV24H, D1-8; MANUFACTURER: HAINAN SINOCHEM UNITED PHARMACEUTICAL INDUSTRY CO., LTD.
     Route: 041
     Dates: start: 20240119, end: 20240127
  6. FLUOROURACIL [Suspect]
     Active Substance: FLUOROURACIL
     Indication: Metastases to liver
  7. FLUOROURACIL [Suspect]
     Active Substance: FLUOROURACIL
     Indication: Metastases to bone
  8. FLUOROURACIL [Suspect]
     Active Substance: FLUOROURACIL
     Indication: Metastases to central nervous system
  9. SODIUM CHLORIDE [Suspect]
     Active Substance: SODIUM CHLORIDE
     Indication: Medication dilution
     Dosage: 500 MILLILITER, QD; CIV24H, D1-8; MANUFACTURER: SHANDONG QIDU PHARMACEUTICAL CO., LTD.
     Route: 041
     Dates: start: 20240119, end: 20240127
  10. SODIUM CHLORIDE [Suspect]
     Active Substance: SODIUM CHLORIDE
     Dosage: 100 MILLILITER, ONCE; IVGTT, D6; MANUFACTURER: SHANDONG QIDU PHARMACEUTICAL CO., LTD.
     Route: 041
     Dates: start: 20240124, end: 20240124
  11. FAM-TRASTUZUMAB DERUXTECAN-NXKI [Suspect]
     Active Substance: FAM-TRASTUZUMAB DERUXTECAN-NXKI
     Indication: Invasive ductal breast carcinoma
     Dosage: 200 MILLIGRAM, ONCE; IVGTT, D5; MANUFACTURER: DAIICHI SANKYO EUROPE GMBH
     Route: 041
     Dates: start: 20240123, end: 20240123
  12. FAM-TRASTUZUMAB DERUXTECAN-NXKI [Suspect]
     Active Substance: FAM-TRASTUZUMAB DERUXTECAN-NXKI
     Indication: Metastases to liver
  13. FAM-TRASTUZUMAB DERUXTECAN-NXKI [Suspect]
     Active Substance: FAM-TRASTUZUMAB DERUXTECAN-NXKI
     Indication: Metastases to bone
  14. FAM-TRASTUZUMAB DERUXTECAN-NXKI [Suspect]
     Active Substance: FAM-TRASTUZUMAB DERUXTECAN-NXKI
     Indication: Metastases to central nervous system
  15. DEXTROSE [Suspect]
     Active Substance: DEXTROSE\DEXTROSE MONOHYDRATE
     Indication: Medication dilution
     Dosage: 100 MILLILITER, ONCE; IVGTT, D5; MANUFACTURER: SHANDONG QIDU PHARMACEUTICAL CO., LTD.
     Route: 041
     Dates: start: 20240123, end: 20240123

REACTIONS (3)
  - Aspartate aminotransferase increased [Recovering/Resolving]
  - Alanine aminotransferase increased [Recovering/Resolving]
  - Blood bilirubin increased [Recovering/Resolving]

NARRATIVE: CASE EVENT DATE: 20240127
